FAERS Safety Report 9862859 (Version 1)
Quarter: 2014Q1

REPORT INFORMATION
  Report Type: Spontaneous
  Country: CN (occurrence: CN)
  Receive Date: 20140203
  Receipt Date: 20140203
  Transmission Date: 20141002
  Serious: Yes (Other)
  Sender: FDA-Public Use
  Company Number: ALCN2014CN000812

PATIENT
  Sex: 0

DRUGS (1)
  1. TRAVATAN [Suspect]
     Dosage: 1 DF, UNK
     Route: 047

REACTIONS (1)
  - Malignant melanoma [Unknown]
